FAERS Safety Report 5278778-7 (Version None)
Quarter: 2007Q1

REPORT INFORMATION
  Report Type: 
  Country: None (occurrence: None)
  Receive Date: 20070328
  Receipt Date: 20070326
  Transmission Date: 20070707
  Serious: Yes (Other)
  Sender: FDA-Public Use
  Company Number: US-BRISTOL-MYERS SQUIBB COMPANY-13728175

PATIENT
  Sex: Female

DRUGS (1)
  1. DEFINITY [Suspect]
     Dates: start: 20070301, end: 20070301

REACTIONS (3)
  - CYANOSIS [None]
  - DYSPNOEA [None]
  - PHARYNGEAL OEDEMA [None]
